FAERS Safety Report 8540417-7 (Version None)
Quarter: 2012Q3

REPORT INFORMATION
  Report Type: 
  Country: None (occurrence: None)
  Receive Date: 20120726
  Receipt Date: 20120419
  Transmission Date: 20120928
  Serious: No
  Sender: FDA-Public Use
  Company Number: US-ASTRAZENECA-2011SE32993

PATIENT
  Age: 66 Year
  Sex: Female
  Weight: 102.1 kg

DRUGS (5)
  1. SEROQUEL [Suspect]
     Indication: BIPOLAR DISORDER
     Route: 048
     Dates: start: 20080101
  2. GABAPENTIN [Concomitant]
  3. CLONAZEPAM [Concomitant]
  4. CITALOPRAM [Concomitant]
  5. SEROQUEL [Suspect]
     Indication: BIPOLAR I DISORDER
     Route: 048
     Dates: start: 20080101

REACTIONS (4)
  - FOOD POISONING [None]
  - LIGAMENT SPRAIN [None]
  - WEIGHT INCREASED [None]
  - GASTROENTERITIS VIRAL [None]
